FAERS Safety Report 7926539-X (Version None)
Quarter: 2011Q4

REPORT INFORMATION
  Report Type: 
  Country: None (occurrence: None)
  Receive Date: 20111118
  Receipt Date: 20111115
  Transmission Date: 20120403
  Serious: No
  Sender: FDA-Public Use
  Company Number: US-BIOGENIDEC-2011BI043635

PATIENT
  Age: 33 Year
  Sex: Male

DRUGS (2)
  1. TYSABRI [Suspect]
     Indication: MULTIPLE SCLEROSIS
     Route: 042
     Dates: start: 20110701, end: 20111001
  2. BENADRYL [Concomitant]
     Indication: PREMEDICATION
     Dates: start: 20110801, end: 20111001

REACTIONS (5)
  - FEELING ABNORMAL [None]
  - HEADACHE [None]
  - DRUG SPECIFIC ANTIBODY PRESENT [None]
  - CHILLS [None]
  - NASOPHARYNGITIS [None]
